FAERS Safety Report 23790058 (Version 1)
Quarter: 2024Q2

REPORT INFORMATION
  Report Type: Spontaneous
  Country: FR (occurrence: None)
  Receive Date: 20240426
  Receipt Date: 20240426
  Transmission Date: 20240716
  Serious: Yes (Other)
  Sender: FDA-Public Use
  Company Number: 2024A077358

PATIENT
  Age: 17 Year
  Sex: Male

DRUGS (5)
  1. QUETIAPINE [Suspect]
     Active Substance: QUETIAPINE
     Dosage: 800 MG PER EPISODE
     Route: 048
     Dates: start: 20240302
  2. ALCOHOL [Suspect]
     Active Substance: ALCOHOL
     Dates: start: 20240302
  3. COCAINE [Suspect]
     Active Substance: COCAINE
     Dates: start: 20240302
  4. CANNABIS SATIVA SUBSP. INDICA TOP [Suspect]
     Active Substance: CANNABIS SATIVA SUBSP. INDICA TOP
     Dosage: 15 JOINTS ON THE EPISODE
     Dates: start: 20240302
  5. OXAZEPAM [Suspect]
     Active Substance: OXAZEPAM
     Route: 048
     Dates: start: 20240302

REACTIONS (2)
  - Toxicity to various agents [Recovered/Resolved]
  - Poisoning [Recovered/Resolved]

NARRATIVE: CASE EVENT DATE: 20240302
